FAERS Safety Report 21763819 (Version 1)
Quarter: 2022Q4

REPORT INFORMATION
  Report Type: Spontaneous
  Country: IL (occurrence: IL)
  Receive Date: 20221222
  Receipt Date: 20221222
  Transmission Date: 20230113
  Serious: Yes (Hospitalization)
  Sender: FDA-Public Use
  Company Number: IL-ABBVIE-4192851

PATIENT
  Age: 62 Year
  Sex: Female

DRUGS (1)
  1. RINVOQ [Suspect]
     Active Substance: UPADACITINIB
     Indication: Rheumatoid arthritis
     Route: 048
     Dates: start: 202201, end: 202210

REACTIONS (9)
  - Pulmonary embolism [Recovering/Resolving]
  - Dyspnoea [Recovering/Resolving]
  - Pulmonary embolism [Recovered/Resolved]
  - Chest pain [Recovering/Resolving]
  - Tachycardia [Unknown]
  - Pain in extremity [Recovering/Resolving]
  - Pain [Recovering/Resolving]
  - Paralysis [Recovering/Resolving]
  - Ischaemic skin ulcer [Recovering/Resolving]

NARRATIVE: CASE EVENT DATE: 20221001
